FAERS Safety Report 20652213 (Version 1)
Quarter: 2022Q1

REPORT INFORMATION
  Report Type: Report from Study
  Country: US (occurrence: None)
  Receive Date: 20220330
  Receipt Date: 20220330
  Transmission Date: 20220423
  Serious: Yes (Hospitalization)
  Sender: FDA-Public Use
  Company Number: US-ROCHE-3005206

PATIENT
  Age: 58 Year

DRUGS (6)
  1. ATEZOLIZUMAB [Suspect]
     Active Substance: ATEZOLIZUMAB
     Indication: Poorly differentiated thyroid carcinoma
     Route: 041
  2. VEMURAFENIB [Suspect]
     Active Substance: VEMURAFENIB
     Indication: Poorly differentiated thyroid carcinoma
     Dosage: ON DAYS 1-21
     Route: 048
  3. COBIMETINIB [Suspect]
     Active Substance: COBIMETINIB
     Indication: Poorly differentiated thyroid carcinoma
     Dosage: ON DAYS 1-21
     Route: 048
  4. BEVACIZUMAB [Suspect]
     Active Substance: BEVACIZUMAB
     Indication: Poorly differentiated thyroid carcinoma
     Route: 042
  5. PACLITAXEL [Suspect]
     Active Substance: PACLITAXEL
     Indication: Poorly differentiated thyroid carcinoma
     Route: 042
  6. PACLITAXEL [Suspect]
     Active Substance: PACLITAXEL
     Indication: Poorly differentiated thyroid carcinoma
     Route: 042

REACTIONS (3)
  - Dyspnoea [Recovered/Resolved]
  - Upper respiratory tract infection [Unknown]
  - Pneumonia [Unknown]

NARRATIVE: CASE EVENT DATE: 20220116
